FAERS Safety Report 20744067 (Version 1)
Quarter: 2022Q2

REPORT INFORMATION
  Report Type: Spontaneous
  Country: JP (occurrence: US)
  Receive Date: 20220425
  Receipt Date: 20220425
  Transmission Date: 20220720
  Serious: Yes (Other)
  Sender: FDA-Public Use
  Company Number: JP-USP-000363

PATIENT
  Age: 59 Year
  Sex: Male

DRUGS (1)
  1. NITROGLYCERIN [Suspect]
     Active Substance: NITROGLYCERIN
     Indication: Kounis syndrome
     Route: 065

REACTIONS (4)
  - Disease progression [Unknown]
  - Kounis syndrome [Unknown]
  - Product use in unapproved indication [Unknown]
  - Loss of consciousness [Recovered/Resolved]
